FAERS Safety Report 15545983 (Version 4)
Quarter: 2019Q3

REPORT INFORMATION
  Report Type: Spontaneous
  Country: US (occurrence: US)
  Receive Date: 20181024
  Receipt Date: 20190815
  Transmission Date: 20191004
  Serious: No
  Sender: FDA-Public Use
  Company Number: US-PFIZER INC-2018413761

PATIENT
  Age: 43 Year
  Sex: Female
  Weight: 107 kg

DRUGS (27)
  1. XELJANZ [Suspect]
     Active Substance: TOFACITINIB CITRATE
     Dosage: UNK
  2. XANAX [Concomitant]
     Active Substance: ALPRAZOLAM
     Indication: ANXIETY
     Dosage: 1 MG, AS NEEDED (DISSOLVES UNDER THE TONGUE)
     Route: 060
     Dates: start: 201803
  3. PROAIR HFA [Concomitant]
     Active Substance: ALBUTEROL SULFATE
     Indication: ASTHMA
     Dosage: UNK, AS NEEDED
     Route: 055
     Dates: start: 201003
  4. FLECTOR [Concomitant]
     Active Substance: DICLOFENAC EPOLAMINE
     Indication: PAIN IN EXTREMITY
  5. TACROLIMUS. [Concomitant]
     Active Substance: TACROLIMUS
     Indication: RASH
     Dosage: UNK, 2X/DAY
     Route: 061
     Dates: start: 201712
  6. FOLIC ACID. [Concomitant]
     Active Substance: FOLIC ACID
     Indication: IMMUNE SYSTEM DISORDER
     Dosage: 400 MG, 1X/DAY
     Route: 048
     Dates: start: 201507
  7. OMEGA 100 [Concomitant]
     Indication: ARTHRITIS
  8. VITAMIN D [COLECALCIFEROL] [Concomitant]
     Active Substance: CHOLECALCIFEROL
     Indication: VITAMIN D DEFICIENCY
  9. XELJANZ [Suspect]
     Active Substance: TOFACITINIB CITRATE
     Indication: RHEUMATOID ARTHRITIS
     Dosage: 5 MG, 2X/DAY (CHEWED WITH A CRACKER)
     Route: 048
     Dates: start: 201807, end: 2018
  10. CALCIUM [Concomitant]
     Active Substance: CALCIUM
     Indication: OSTEOPENIA
     Dosage: 1500 MG, 1X/DAY (CHEWABLE)
     Route: 048
     Dates: start: 201004
  11. GABAPENTIN. [Concomitant]
     Active Substance: GABAPENTIN
     Indication: FIBROMYALGIA
     Dosage: 800 MG, 3X/DAY
     Dates: start: 201702
  12. TACROLIMUS. [Concomitant]
     Active Substance: TACROLIMUS
     Indication: SKIN INFECTION
  13. FLECTOR [Concomitant]
     Active Substance: DICLOFENAC EPOLAMINE
     Indication: BACK PAIN
     Dosage: UNK, AS NEEDED (FOR 12 HOURS)
     Route: 061
     Dates: start: 201412
  14. NORETHINDRONE [NORETHISTERONE ACETATE] [Concomitant]
     Indication: HORMONE REPLACEMENT THERAPY
     Dosage: 0.35 MG, 1X/DAY (DISSOLVES IN MOUTH)
     Route: 048
     Dates: start: 201805
  15. FOLIC ACID. [Concomitant]
     Active Substance: FOLIC ACID
     Indication: PROPHYLAXIS
  16. RASUVO [Suspect]
     Active Substance: METHOTREXATE SODIUM
     Indication: FIBROMYALGIA
     Dosage: UNK UNK, WEEKLY
     Route: 058
     Dates: start: 201810
  17. TRAMADOL. [Concomitant]
     Active Substance: TRAMADOL
     Indication: PAIN
     Dosage: 50 MG, AS NEEDED (3 TIMES DAILY AS NEEDED, CHEWED)
     Dates: start: 201608
  18. VITAMIN B12 [Concomitant]
     Active Substance: CYANOCOBALAMIN
     Indication: VITAMIN B12 DEFICIENCY
     Dosage: 2500 MG, 1X/DAY
     Route: 048
     Dates: start: 201004
  19. ACETAMINOPHEN AND CODEINE [Concomitant]
     Active Substance: ACETAMINOPHEN\CODEINE PHOSPHATE
     Indication: PAIN
     Dosage: 45 ML, AS NEEDED (3 TEASPOONS LIQUID)
     Route: 048
     Dates: start: 2010
  20. MONTELUKAST [Concomitant]
     Active Substance: MONTELUKAST SODIUM
     Indication: ASTHMA
  21. XELJANZ [Suspect]
     Active Substance: TOFACITINIB CITRATE
     Dosage: 5 MG, 2X/DAY (CHEWED WITH A CRACKER)
     Route: 048
     Dates: start: 201810
  22. VITAMIN C [Concomitant]
     Active Substance: ASCORBIC ACID
     Indication: IMPAIRED HEALING
     Dosage: 1500 MG, 1X/DAY (CHEWABLE)
     Dates: start: 201004
  23. DULOXETINE. [Concomitant]
     Active Substance: DULOXETINE
     Indication: FIBROMYALGIA
     Dosage: 60 MG, 1X/DAY
     Dates: start: 201610
  24. MONTELUKAST [Concomitant]
     Active Substance: MONTELUKAST SODIUM
     Indication: HYPERSENSITIVITY
     Dosage: 10 MG, 1X/DAY (DISSOLVES IN MOUTH)
     Route: 002
     Dates: start: 201204
  25. VITAMIN D [COLECALCIFEROL] [Concomitant]
     Active Substance: CHOLECALCIFEROL
     Indication: ARTHRITIS
     Dosage: 10000 MG, 1X/DAY
     Route: 048
     Dates: start: 201004
  26. XANAX [Concomitant]
     Active Substance: ALPRAZOLAM
     Indication: PANIC ATTACK
  27. OMEGA 100 [Concomitant]
     Indication: INFLAMMATION
     Dosage: 300 MG, 1X/DAY
     Route: 048
     Dates: start: 201507

REACTIONS (2)
  - Rash [Unknown]
  - Drug ineffective [Unknown]
